FAERS Safety Report 24665557 (Version 1)
Quarter: 2024Q4

REPORT INFORMATION
  Report Type: Spontaneous
  Country: GB (occurrence: GB)
  Receive Date: 20241126
  Receipt Date: 20241126
  Transmission Date: 20250115
  Serious: Yes (Other)
  Sender: ELI LILLY AND COMPANY
  Company Number: None

PATIENT
  Age: 41 Year
  Sex: Female
  Weight: 88 kg

DRUGS (1)
  1. MOUNJARO [Suspect]
     Active Substance: TIRZEPATIDE
     Indication: Weight control
     Dosage: 5 MG, WEEKLY (1/W)
     Route: 065
     Dates: start: 20241104

REACTIONS (4)
  - Pruritus [Not Recovered/Not Resolved]
  - Paraesthesia oral [Not Recovered/Not Resolved]
  - Paraesthesia oral [Not Recovered/Not Resolved]
  - Injection site reaction [Not Recovered/Not Resolved]

NARRATIVE: CASE EVENT DATE: 20241104
